FAERS Safety Report 10332617 (Version 3)
Quarter: 2014Q3

REPORT INFORMATION
  Report Type: Spontaneous
  Country: AU (occurrence: AU)
  Receive Date: 20140722
  Receipt Date: 20140725
  Transmission Date: 20150326
  Serious: Yes (Life-Threatening)
  Sender: FDA-Public Use
  Company Number: AU-ALLERGAN-1002169US

PATIENT
  Age: 85 Year
  Sex: Male
  Weight: 64 kg

DRUGS (20)
  1. BLEPH-10 [Suspect]
     Active Substance: SULFACETAMIDE SODIUM
     Indication: CONJUNCTIVITIS
     Dosage: 1 GTT, UNK
     Route: 047
     Dates: start: 20100128, end: 20100128
  2. CARDIPRIN [Concomitant]
  3. VENTOLIN [Concomitant]
     Active Substance: ALBUTEROL SULFATE
  4. WARFARIN [Concomitant]
     Active Substance: WARFARIN
  5. BLEPH-10 [Suspect]
     Active Substance: SULFACETAMIDE SODIUM
     Dosage: UNK
  6. SPIRIVA [Concomitant]
     Active Substance: TIOTROPIUM BROMIDE MONOHYDRATE
  7. LIVOSTIN EYE DROPS [Concomitant]
  8. OSSMAX [Concomitant]
  9. UREMIDE [Concomitant]
     Active Substance: FUROSEMIDE
  10. LIPITOR [Concomitant]
     Active Substance: ATORVASTATIN CALCIUM
  11. CITALOPRAM [Concomitant]
     Active Substance: CITALOPRAM HYDROBROMIDE
  12. SEROTIDE [Concomitant]
  13. PREDNISOLONE. [Concomitant]
     Active Substance: PREDNISOLONE
  14. DIGOXIN. [Concomitant]
     Active Substance: DIGOXIN
  15. PANAMAX [Concomitant]
     Active Substance: ACETAMINOPHEN
  16. SPIRACTIN [Concomitant]
     Active Substance: SPIRONOLACTONE
  17. CLOPIDOGREL [Concomitant]
     Active Substance: CLOPIDOGREL BISULFATE
  18. STEMATIL [Concomitant]
  19. PROSCAR [Concomitant]
     Active Substance: FINASTERIDE
  20. REFRESH TEARS PLUS [Concomitant]

REACTIONS (1)
  - Dyspnoea [Recovered/Resolved]

NARRATIVE: CASE EVENT DATE: 20100128
